FAERS Safety Report 16075046 (Version 1)
Quarter: 2019Q1

REPORT INFORMATION
  Report Type: Spontaneous
  Country: US (occurrence: US)
  Receive Date: 20190315
  Receipt Date: 20190315
  Transmission Date: 20190418
  Serious: No
  Sender: FDA-Public Use
  Company Number: US-009507513-1903USA004262

PATIENT
  Age: 65 Year
  Sex: Male

DRUGS (5)
  1. IMIPENEM [Concomitant]
     Active Substance: IMIPENEM
  2. VANCOMYCIN [Concomitant]
     Active Substance: VANCOMYCIN
     Route: 048
  3. CUBICIN [Suspect]
     Active Substance: DAPTOMYCIN
     Indication: KLEBSIELLA BACTERAEMIA
  4. CUBICIN [Suspect]
     Active Substance: DAPTOMYCIN
     Indication: ENTEROCOCCAL INFECTION
  5. FLUCONAZOLE. [Concomitant]
     Active Substance: FLUCONAZOLE

REACTIONS (1)
  - Product use in unapproved indication [Unknown]
